FAERS Safety Report 15678265 (Version 1)
Quarter: 2018Q4

REPORT INFORMATION
  Report Type: Spontaneous
  Country: ES (occurrence: ES)
  Receive Date: 20181201
  Receipt Date: 20181201
  Transmission Date: 20190205
  Serious: Yes (Hospitalization)
  Sender: FDA-Public Use
  Company Number: ES-ACCORD-094422

PATIENT
  Age: 82 Year
  Sex: Female

DRUGS (8)
  1. CLOPIDOGREL [Suspect]
     Active Substance: CLOPIDOGREL BISULFATE
     Indication: CORONARY ARTERIAL STENT INSERTION
     Dosage: 75 MG EVERY 24 HOURS
     Route: 048
     Dates: start: 20161110, end: 20170122
  2. XARELTO [Interacting]
     Active Substance: RIVAROXABAN
     Indication: ATRIAL FIBRILLATION
     Dosage: 15 MG FILM-COATED TABLETS (28 TABLETS), 28 TABLETS, 1 TABLET EVERY 24 HOURS
     Route: 048
     Dates: start: 20161110, end: 20170125
  3. BISOPROLOL [Concomitant]
     Active Substance: BISOPROLOL
     Route: 048
     Dates: start: 20161110
  4. ALDACTONE [Concomitant]
     Active Substance: SPIRONOLACTONE
     Dosage: 100 MG FILM-COATED TABLETS, 20 TABLETS
     Route: 048
     Dates: start: 20161110
  5. OPTOVITE B12 [Concomitant]
     Active Substance: CYANOCOBALAMIN
     Dosage: 1.000 MICROGRAMS SOLUTION FOR INJECTION, 5 AMPOULES OF 2 ML, 1 AT BREAKFAST
     Dates: start: 20140228
  6. ATORVASTATIN [Concomitant]
     Active Substance: ATORVASTATIN
     Dosage: 80 MG EVERY 24 HOURS
     Dates: start: 20161110
  7. VALSARTAN. [Concomitant]
     Active Substance: VALSARTAN
     Route: 048
     Dates: start: 20161110
  8. ACETYLSALICYLIC ACID [Interacting]
     Active Substance: ASPIRIN
     Indication: PRODUCT USED FOR UNKNOWN INDICATION
     Dosage: 100 MG EVERY 24 HOURS
     Dates: start: 20161110, end: 20170122

REACTIONS (3)
  - Drug interaction [Unknown]
  - Gastroduodenal haemorrhage [Recovered/Resolved]
  - Anaemia [Recovered/Resolved]

NARRATIVE: CASE EVENT DATE: 20170120
